FAERS Safety Report 4508726-6 (Version None)
Quarter: 2004Q4

REPORT INFORMATION
  Report Type: 
  Country: None (occurrence: None)
  Receive Date: 20041123
  Receipt Date: 20040621
  Transmission Date: 20050328
  Serious: No
  Sender: FDA-Public Use
  Company Number: US-GLAXOSMITHKLINE-A0515387A

PATIENT
  Age: 75 Year
  Sex: Male

DRUGS (4)
  1. WELLBUTRIN [Suspect]
     Indication: DEPRESSION
     Dosage: 150MG PER DAY
     Route: 048
     Dates: start: 20030601
  2. HYTRIN [Concomitant]
  3. LESCOL [Concomitant]
  4. PRINIVIL [Concomitant]

REACTIONS (2)
  - DIZZINESS [None]
  - UNEXPECTED THERAPEUTIC DRUG EFFECT [None]
